FAERS Safety Report 20551312 (Version 2)
Quarter: 2022Q2

REPORT INFORMATION
  Report Type: Report from Study
  Country: US (occurrence: None)
  Receive Date: 20220304
  Receipt Date: 20220408
  Transmission Date: 20220720
  Serious: Yes (Other)
  Sender: FDA-Public Use
  Company Number: 2022A095194

PATIENT
  Sex: Female

DRUGS (1)
  1. TAGRISSO [Suspect]
     Active Substance: OSIMERTINIB
     Indication: Non-small cell lung cancer
     Route: 048
     Dates: start: 20210810

REACTIONS (10)
  - Pulmonary oedema [Not Recovered/Not Resolved]
  - Lymphoedema [Unknown]
  - Hepatocellular carcinoma [Unknown]
  - Asthenia [Unknown]
  - Fatigue [Unknown]
  - Swelling [Unknown]
  - Constipation [Not Recovered/Not Resolved]
  - Muscle atrophy [Unknown]
  - Weight decreased [Unknown]
  - Hypotension [Unknown]
